FAERS Safety Report 5039430-6 (Version None)
Quarter: 2006Q2

REPORT INFORMATION
  Report Type: 
  Country: None (occurrence: None)
  Receive Date: 20060623
  Receipt Date: 20060615
  Transmission Date: 20061013
  Serious: Yes (Other)
  Sender: FDA-Public Use
  Company Number: 2006077354

PATIENT
  Sex: Female
  Weight: 95.2554 kg

DRUGS (3)
  1. BENADRYL [Suspect]
     Indication: HYPERSENSITIVITY
     Dosage: (1 IN 1 D), ORAL
     Route: 048
  2. BENADRYL [Suspect]
     Indication: HYPERSENSITIVITY
     Dosage: 20 MG (20 MG, 1 IN 1 D), INTRAVENOUS
     Route: 042
     Dates: start: 20060612
  3. INSULIN HUMULIN 70/30 (INSULIN HUMAN, INSULIN HUMAN INJECTION, ISOPHAN [Concomitant]

REACTIONS (3)
  - CELLULITIS [None]
  - COUGH [None]
  - THROAT IRRITATION [None]
